FAERS Safety Report 9731556 (Version 1)
Quarter: 2013Q4

REPORT INFORMATION
  Report Type: Spontaneous
  Country: GB (occurrence: None)
  Receive Date: 20131203
  Receipt Date: 20131203
  Transmission Date: 20140711
  Serious: Yes (Other)
  Sender: FDA-Public Use
  Company Number: 7251676

PATIENT
  Age: 26 Year
  Sex: Female

DRUGS (1)
  1. LEVOTHYROXINE (LEVOTHYROXINE) (LEVOTHYROXINE SODIUM) [Suspect]
     Indication: HYPOTHYROIDISM
     Dosage: 50 MCG

REACTIONS (7)
  - Stillbirth [None]
  - Placental infarction [None]
  - Blood thyroid stimulating hormone increased [None]
  - Treatment noncompliance [None]
  - Maternal exposure timing unspecified [None]
  - Haemorrhage in pregnancy [None]
  - Pregnancy [None]
